FAERS Safety Report 4881659-1 (Version None)
Quarter: 2006Q1

REPORT INFORMATION
  Report Type: 
  Country: None (occurrence: None)
  Receive Date: 20060111
  Receipt Date: 20060111
  Transmission Date: 20060701
  Serious: Yes (Hospitalization, Other)
  Sender: FDA-Public Use
  Company Number: None

PATIENT
  Sex: Male
  Weight: 69.4 kg

DRUGS (5)
  1. CYCLOPHOSPHAMIDE [Suspect]
     Indication: AIDS RELATED COMPLICATION
     Dosage: SEE IMAGE
     Dates: start: 20051216, end: 20051220
  2. DOXORUBICIN HCL [Suspect]
     Dosage: SEE IMAGE
     Dates: start: 20051216, end: 20051219
  3. ETOPOSIDE [Suspect]
     Dosage: SEE IMAGE
     Dates: start: 20051216, end: 20051219
  4. PREDNISONE [Suspect]
     Dosage: SEE IMAGE
     Dates: start: 20051216, end: 20051220
  5. VINCRISTINE SULFATE [Suspect]
     Dosage: SEE IMAGE
     Dates: start: 20051216, end: 20051219

REACTIONS (3)
  - CATHETER RELATED INFECTION [None]
  - ILEUS [None]
  - PSEUDOMONAS INFECTION [None]
